FAERS Safety Report 10175047 (Version 2)
Quarter: 2014Q2

REPORT INFORMATION
  Report Type: Report from Study
  Country: US (occurrence: US)
  Receive Date: 20140515
  Receipt Date: 20140604
  Transmission Date: 20141212
  Serious: Yes (Hospitalization)
  Sender: FDA-Public Use
  Company Number: US-JNJFOC-20140506329

PATIENT
  Age: 52 Year
  Sex: Female
  Weight: 86.18 kg

DRUGS (14)
  1. SIMPONI [Suspect]
     Indication: RHEUMATOID ARTHRITIS
     Route: 058
     Dates: end: 201306
  2. TRAMADOL [Concomitant]
     Indication: PAIN
     Route: 048
  3. METHOTREXATE [Concomitant]
     Indication: RHEUMATOID ARTHRITIS
     Route: 048
     Dates: start: 2000
  4. FOLIC ACID [Concomitant]
     Indication: PROPHYLAXIS
     Route: 048
     Dates: start: 2000
  5. NATURE-THROID [Concomitant]
     Indication: HYPOTHYROIDISM
     Route: 048
     Dates: start: 201212
  6. ARTHROTEC [Concomitant]
     Indication: RHEUMATOID ARTHRITIS
     Route: 048
     Dates: start: 2000
  7. VITAMIN B12 [Concomitant]
     Indication: VITAMIN B12 DEFICIENCY
     Route: 050
     Dates: start: 201204
  8. VITAMIN D [Concomitant]
     Indication: VITAMIN D DEFICIENCY
     Route: 048
     Dates: start: 201212
  9. PREGNENOLONE [Concomitant]
     Indication: HORMONE THERAPY
     Route: 048
     Dates: start: 201212
  10. DHEA [Concomitant]
     Indication: HORMONE THERAPY
     Route: 048
     Dates: start: 201212
  11. TESTOSTERONE CREAM [Concomitant]
     Indication: BLOOD TESTOSTERONE DECREASED
     Route: 061
     Dates: start: 201401
  12. PROVENTIL [Concomitant]
     Indication: ASTHMA
     Route: 055
  13. NORCO [Concomitant]
     Indication: PAIN
     Dosage: 1OR 2 TABLETS EVERY 4 HOURS AS NEEDED
     Route: 048
  14. VALIUM [Concomitant]
     Indication: MUSCLE SPASMS
     Route: 048

REACTIONS (7)
  - Nerve compression [Recovered/Resolved]
  - Synovial cyst [Recovered/Resolved]
  - Dural tear [Recovered/Resolved]
  - Intraspinal abscess [Recovered/Resolved]
  - Impaired healing [Recovered/Resolved]
  - Post procedural infection [Recovered/Resolved]
  - Weight decreased [Unknown]
